FAERS Safety Report 16398574 (Version 2)
Quarter: 2019Q2

REPORT INFORMATION
  Report Type: Spontaneous
  Country: DE (occurrence: DE)
  Receive Date: 20190606
  Receipt Date: 20190621
  Transmission Date: 20190711
  Serious: Yes (Other)
  Sender: FDA-Public Use
  Company Number: DE-TEVA-2019-DE-1059122

PATIENT
  Age: 60 Year
  Sex: Male

DRUGS (11)
  1. RITUXIMAB. [Suspect]
     Active Substance: RITUXIMAB
     Indication: MANTLE CELL LYMPHOMA STAGE IV
     Dosage: RECEIVED THREE CYCLES
     Route: 065
  2. BICNU [Suspect]
     Active Substance: CARMUSTINE
     Indication: MANTLE CELL LYMPHOMA STAGE IV
     Dosage: RECEIVED THREE CYCLES; PART OF HIGH-DOSE BEAM REGIMEN
     Route: 065
  3. RITUXIMAB. [Suspect]
     Active Substance: RITUXIMAB
     Dosage: MAINTENANCE THERAPY
     Route: 065
  4. CYTARABINE. [Suspect]
     Active Substance: CYTARABINE
     Indication: MANTLE CELL LYMPHOMA STAGE IV
     Dosage: RECEIVED THREE CYCLES; PART OF HIGH-DOSE BEAM REGIMEN
     Route: 065
  5. ADALIMUMAB [Suspect]
     Active Substance: ADALIMUMAB
     Indication: PSORIASIS
     Route: 065
  6. ETOPOSIDE. [Suspect]
     Active Substance: ETOPOSIDE
     Indication: MANTLE CELL LYMPHOMA STAGE IV
     Dosage: RECEIVED THREE CYCLES; PART OF HIGH-DOSE BEAM REGIMEN
     Route: 065
  7. DOXORUBICIN [Suspect]
     Active Substance: DOXORUBICIN
     Indication: MANTLE CELL LYMPHOMA STAGE IV
     Dosage: RECEIVED THREE CYCLES; PART OF MAXI-CHOP REGIMEN
     Route: 065
  8. PREDNISOLONE. [Suspect]
     Active Substance: PREDNISOLONE
     Indication: MANTLE CELL LYMPHOMA STAGE IV
     Dosage: RECEIVED THREE CYCLES; PART OF MAXI-CHOP REGIMEN
     Route: 065
  9. MELPHALAN. [Suspect]
     Active Substance: MELPHALAN
     Indication: MANTLE CELL LYMPHOMA STAGE IV
     Dosage: RECEIVED THREE CYCLES; PART OF HIGH-DOSE BEAM REGIMEN
     Route: 065
  10. CYCLOPHOSPHAMIDE. [Suspect]
     Active Substance: CYCLOPHOSPHAMIDE
     Indication: MANTLE CELL LYMPHOMA STAGE IV
     Dosage: RECEIVED THREE CYCLES; PART OF MAXI-CHOP REGIMEN
     Route: 065
  11. VINCRISTINE [Suspect]
     Active Substance: VINCRISTINE
     Indication: MANTLE CELL LYMPHOMA STAGE IV
     Dosage: RECEIVED THREE CYCLES; PART OF MAXI-CHOP REGIMEN
     Route: 065

REACTIONS (8)
  - Febrile neutropenia [Recovered/Resolved]
  - Pancytopenia [Recovering/Resolving]
  - Bronchopulmonary aspergillosis [Recovered/Resolved]
  - Hepatic infection fungal [Recovered/Resolved]
  - Aspergillus infection [Recovered/Resolved]
  - Herpes zoster [Recovered/Resolved]
  - Mantle cell lymphoma stage IV [Recovered/Resolved]
  - Retinal haemorrhage [Recovered/Resolved]

NARRATIVE: CASE EVENT DATE: 2016
